FAERS Safety Report 4636412-0 (Version None)
Quarter: 2005Q2

REPORT INFORMATION
  Report Type: 
  Country: None (occurrence: None)
  Receive Date: 20050413
  Receipt Date: 20050413
  Transmission Date: 20051028
  Serious: No
  Sender: FDA-Public Use
  Company Number: None

PATIENT
  Sex: Female
  Weight: 76.6579 kg

DRUGS (1)
  1. HUMIRA [Suspect]
     Indication: ANKYLOSING SPONDYLITIS
     Dosage: 40 MG    Q WEEK   SUBCUTANEO
     Route: 058
     Dates: start: 20030716, end: 20041001

REACTIONS (4)
  - ARTHRALGIA [None]
  - FATIGUE [None]
  - MUSCLE FATIGUE [None]
  - PARAESTHESIA [None]
